FAERS Safety Report 4796600-X (Version None)
Quarter: 2005Q4

REPORT INFORMATION
  Report Type: 
  Country: None (occurrence: None)
  Receive Date: 20051013
  Receipt Date: 20051004
  Transmission Date: 20060501
  Serious: Yes (Hospitalization, Other)
  Sender: FDA-Public Use
  Company Number: 200517060US

PATIENT
  Sex: Female
  Weight: 56.3 kg

DRUGS (3)
  1. LANTUS [Suspect]
     Indication: DIABETES MELLITUS
     Dosage: DOSE UNIT: UNITS
     Route: 051
     Dates: start: 20030101, end: 20051001
  2. HUMALOG [Concomitant]
     Dosage: DOSE: UNK
  3. ORTHO TRI-CYCLEN [Concomitant]
     Dosage: DOSE: UNK

REACTIONS (4)
  - CONVULSION [None]
  - DIABETIC KETOACIDOSIS [None]
  - HYPERGLYCAEMIA [None]
  - TREATMENT NONCOMPLIANCE [None]
